FAERS Safety Report 5144979-1 (Version None)
Quarter: 2006Q4

REPORT INFORMATION
  Report Type: 
  Country: None (occurrence: None)
  Receive Date: 20061107
  Receipt Date: 20061025
  Transmission Date: 20070319
  Serious: Yes (Other)
  Sender: FDA-Public Use
  Company Number: SEWYE342226OCT06

PATIENT
  Sex: Female

DRUGS (4)
  1. ENBREL [Suspect]
     Indication: DRUG USE FOR UNKNOWN INDICATION
     Dosage: UNKNOWN
     Route: 058
     Dates: start: 20041018, end: 20060526
  2. MAREVAN [Concomitant]
     Dosage: UNKNOWN
     Route: 048
     Dates: start: 20021001
  3. SELO-ZOK [Concomitant]
     Dosage: UNKNOWN
     Route: 048
     Dates: start: 20021001
  4. METHOTREXATE [Concomitant]
     Route: 048
     Dates: start: 19970916

REACTIONS (1)
  - BASAL CELL CARCINOMA [None]
